FAERS Safety Report 8598965-X (Version None)
Quarter: 2012Q3

REPORT INFORMATION
  Report Type: 
  Country: None (occurrence: None)
  Receive Date: 20120806
  Receipt Date: 20120806
  Transmission Date: 20120928
  Serious: No
  Sender: FDA-Public Use
  Company Number: None

PATIENT
  Age: 37 Year
  Sex: Female
  Weight: 93.441 kg

DRUGS (1)
  1. VIIBRYD [Suspect]
     Indication: DEPRESSION
     Dosage: 40MG 1 X DAILY PO WEENINGOFF
     Route: 048
     Dates: start: 20120401

REACTIONS (3)
  - PRURITUS GENERALISED [None]
  - DYSKINESIA [None]
  - DRUG WITHDRAWAL SYNDROME [None]
